FAERS Safety Report 9355991 (Version 1)
Quarter: 2013Q2

REPORT INFORMATION
  Report Type: Spontaneous
  Country: US (occurrence: US)
  Receive Date: 20130619
  Receipt Date: 20130619
  Transmission Date: 20140414
  Serious: No
  Sender: FDA-Public Use
  Company Number: US-TEVA-412984USA

PATIENT
  Age: 54 Year
  Sex: Female
  Weight: 81.72 kg

DRUGS (11)
  1. NUVIGIL [Suspect]
     Indication: BIPOLAR DISORDER
     Route: 048
     Dates: start: 20130603, end: 20130605
  2. DEPAKOTE [Concomitant]
     Indication: DEPRESSION
     Dosage: QD
     Route: 048
  3. WELLBUTRIN [Concomitant]
     Indication: DEPRESSION
     Dosage: QC
     Route: 048
  4. MULTIVITAMIN [Concomitant]
     Indication: MEDICAL DIET
     Route: 048
  5. VITAMIN B COMPLEX [Concomitant]
     Indication: MEDICAL DIET
     Dosage: DAILY
     Route: 048
  6. BIOTENE [Concomitant]
     Indication: MEDICAL DIET
     Dosage: DAILY
     Route: 048
  7. COQ10 [Concomitant]
     Indication: MEDICAL DIET
     Dosage: DAILY
     Route: 048
  8. FOLIC ACID [Concomitant]
     Indication: MEDICAL DIET
     Dosage: DAILY
     Route: 048
  9. VITAMIN D [Concomitant]
     Indication: MEDICAL DIET
     Dosage: DAILY
     Route: 048
  10. CALCIUM [Concomitant]
     Indication: MEDICAL DIET
     Dosage: CAILY
     Route: 048
  11. PROTEIN DRINKS [Concomitant]
     Indication: MEDICAL DIET
     Dosage: DAILY
     Route: 048

REACTIONS (4)
  - Headache [Recovered/Resolved]
  - Eye pain [Recovered/Resolved]
  - Headache [Recovered/Resolved]
  - Off label use [Unknown]
